FAERS Safety Report 5194477-4 (Version None)
Quarter: 2006Q4

REPORT INFORMATION
  Report Type: 
  Country: None (occurrence: None)
  Receive Date: 20061220
  Receipt Date: 20061205
  Transmission Date: 20070319
  Serious: Yes (Hospitalization, Other)
  Sender: FDA-Public Use
  Company Number: 02100-JPN-05-0285

PATIENT
  Age: 69 Year
  Sex: Male

DRUGS (5)
  1. CILOSTAZOL [Suspect]
     Dosage: ONE OF 200 MG OR 81 MG
     Route: 048
     Dates: start: 20040204
  2. NICERGOLINE [Concomitant]
  3. GLIMEPRIDE [Concomitant]
  4. CARBOCISTEINE [Concomitant]
  5. ASPIRIN [Suspect]

REACTIONS (5)
  - ANAEMIA [None]
  - BRONCHOPNEUMONIA [None]
  - EMPHYSEMA [None]
  - GASTRIC ULCER HAEMORRHAGE [None]
  - HELICOBACTER INFECTION [None]
